FAERS Safety Report 19270207 (Version 1)
Quarter: 2021Q2

REPORT INFORMATION
  Report Type: Spontaneous
  Country: US (occurrence: US)
  Receive Date: 20210518
  Receipt Date: 20210518
  Transmission Date: 20210717
  Serious: Yes (Other)
  Sender: FDA-Public Use
  Company Number: None

PATIENT
  Age: 63 Year
  Sex: Female
  Weight: 75.6 kg

DRUGS (5)
  1. NP THYROID [Suspect]
     Active Substance: LEVOTHYROXINE\LIOTHYRONINE
     Indication: HYPOTHYROIDISM
     Dosage: ?          QUANTITY:90 TABLET(S);?
     Route: 048
     Dates: start: 20210422, end: 20210505
  2. ATORVASTATIN [Concomitant]
     Active Substance: ATORVASTATIN
  3. SYNTHROID [Concomitant]
     Active Substance: LEVOTHYROXINE SODIUM
  4. METOPROLOL. [Concomitant]
     Active Substance: METOPROLOL
  5. TOPAMAX [Concomitant]
     Active Substance: TOPIRAMATE

REACTIONS (9)
  - Recalled product administered [None]
  - Dizziness [None]
  - Product dispensing error [None]
  - Blood pressure increased [None]
  - Rash [None]
  - Headache [None]
  - Wrong product administered [None]
  - Pruritus [None]
  - Nausea [None]

NARRATIVE: CASE EVENT DATE: 20210430
